FAERS Safety Report 9315256 (Version 1)
Quarter: 2013Q2

REPORT INFORMATION
  Report Type: Spontaneous
  Country: US (occurrence: US)
  Receive Date: 20130529
  Receipt Date: 20130529
  Transmission Date: 20140414
  Serious: Yes (Other)
  Sender: FDA-Public Use
  Company Number: US-ASTRAZENECA-2013SE34763

PATIENT
  Age: 69 Year
  Sex: Male
  Weight: 86.2 kg

DRUGS (2)
  1. ZOLADEX [Suspect]
     Indication: PROSTATE CANCER
     Route: 058
     Dates: start: 2012
  2. RADIATION THERAPY [Concomitant]
     Indication: PROSTATE CANCER
     Dates: start: 2012

REACTIONS (2)
  - Abdominal distension [Not Recovered/Not Resolved]
  - Drug prescribing error [Not Recovered/Not Resolved]
